FAERS Safety Report 7142542-4 (Version None)
Quarter: 2010Q4

REPORT INFORMATION
  Report Type: 
  Country: None (occurrence: None)
  Receive Date: 20101207
  Receipt Date: 20101129
  Transmission Date: 20110411
  Serious: Yes (Other)
  Sender: FDA-Public Use
  Company Number: PHHO2010JP18077

PATIENT
  Sex: Male
  Weight: 56 kg

DRUGS (10)
  1. IMATINIB [Suspect]
     Indication: CHRONIC MYELOID LEUKAEMIA
     Dosage: 300 MG, QD
     Route: 048
     Dates: start: 20090728, end: 20101101
  2. BOSUTINIB [Concomitant]
     Indication: CHRONIC MYELOID LEUKAEMIA
     Dosage: UNK
     Dates: start: 20090728, end: 20101110
  3. TRIMEBUTINE MALEATE [Concomitant]
  4. OLOPATADINE HYDROCHLORIDE [Concomitant]
  5. LANSOPRAZOLE [Concomitant]
  6. MAGNESIUM OXIDE [Concomitant]
  7. ASPIRIN [Concomitant]
  8. ALPRAZOLAM [Concomitant]
  9. POLAPREZINC [Concomitant]
  10. ISOSORBIDE DINITRATE [Concomitant]

REACTIONS (1)
  - RECTAL CANCER [None]
